FAERS Safety Report 4804310-5 (Version None)
Quarter: 2005Q4

REPORT INFORMATION
  Report Type: 
  Country: None (occurrence: None)
  Receive Date: 20051017
  Receipt Date: 20051006
  Transmission Date: 20060501
  Serious: Yes (Hospitalization)
  Sender: FDA-Public Use
  Company Number: B0396574A

PATIENT
  Age: 28 Year
  Sex: Female

DRUGS (5)
  1. ALKERAN [Suspect]
     Indication: B-CELL LYMPHOMA
     Dates: start: 20021128, end: 20021203
  2. CARMUSTINE [Suspect]
     Indication: B-CELL LYMPHOMA
     Dates: start: 20021128, end: 20021203
  3. CYTARABINE [Suspect]
     Indication: B-CELL LYMPHOMA
     Dates: start: 20021128, end: 20021203
  4. ETOPOSIDE [Suspect]
     Indication: B-CELL LYMPHOMA
     Dates: start: 20021128, end: 20021203
  5. STEM CELL TRANSPLANT [Concomitant]

REACTIONS (7)
  - GASTROENTERITIS SALMONELLA [None]
  - IMMUNE SYSTEM DISORDER [None]
  - LYMPHOCYTE PERCENTAGE DECREASED [None]
  - NEUTROPENIC COLITIS [None]
  - NEUTROPHIL PERCENTAGE INCREASED [None]
  - STOMATITIS [None]
  - WHITE BLOOD CELL COUNT DECREASED [None]
